FAERS Safety Report 23415532 (Version 1)
Quarter: 2024Q1

REPORT INFORMATION
  Report Type: Report from Study
  Country: US (occurrence: None)
  Receive Date: 20240118
  Receipt Date: 20240118
  Transmission Date: 20240410
  Serious: Yes (Other)
  Sender: FDA-Public Use
  Company Number: 2024A008741

PATIENT
  Sex: Female

DRUGS (1)
  1. TEZSPIRE [Suspect]
     Active Substance: TEZEPELUMAB-EKKO

REACTIONS (13)
  - Lichen sclerosus [Unknown]
  - Pulmonary fibrosis [Unknown]
  - Aortic arteriosclerosis [Unknown]
  - Cerebral arteriosclerosis [Unknown]
  - Rhinitis [Unknown]
  - Essential hypertension [Unknown]
  - Osteoporosis [Unknown]
  - Hyponatraemia [Unknown]
  - Cognitive disorder [Unknown]
  - Insomnia [Unknown]
  - Inappropriate antidiuretic hormone secretion [Unknown]
  - Rosacea [Unknown]
  - Alcohol abuse [Unknown]
